FAERS Safety Report 4721637-6 (Version None)
Quarter: 2005Q3

REPORT INFORMATION
  Report Type: 
  Country: None (occurrence: None)
  Receive Date: 20050721
  Receipt Date: 20050127
  Transmission Date: 20060218
  Serious: No
  Sender: FDA-Public Use
  Company Number: US-BRISTOL-MYERS SQUIBB COMPANY-12840591

PATIENT
  Age: 37 Year
  Sex: Female

DRUGS (3)
  1. COUMADIN [Suspect]
     Indication: THROMBOSIS
     Route: 048
     Dates: start: 20040601, end: 20050101
  2. GLUCOPHAGE [Concomitant]
  3. LEVOXYL [Concomitant]

REACTIONS (1)
  - THERAPEUTIC PRODUCT INEFFECTIVE [None]
